FAERS Safety Report 4388939-7 (Version None)
Quarter: 2004Q2

REPORT INFORMATION
  Report Type: 
  Country: None (occurrence: None)
  Receive Date: 20040624
  Receipt Date: 20040607
  Transmission Date: 20050107
  Serious: No
  Sender: FDA-Public Use
  Company Number: PIR 0406008

PATIENT
  Age: 82 Year
  Sex: Female
  Weight: 47.6277 kg

DRUGS (9)
  1. PROCALAMINE [Suspect]
     Indication: MARKEDLY REDUCED DIETARY INTAKE
     Dosage: 3% 16ML/HR IV
     Route: 042
     Dates: start: 20040529, end: 20040531
  2. APAP TAB [Concomitant]
  3. ENALAPRIL MALEATE [Concomitant]
  4. HEPARIN [Concomitant]
  5. ASPIRIN [Concomitant]
  6. DOCUSATE [Concomitant]
  7. DONEPEZIL HCL [Concomitant]
  8. ESCITALOPRAM OXALATE [Concomitant]
  9. LANSOPRAZOLE [Concomitant]

REACTIONS (3)
  - COMPARTMENT SYNDROME [None]
  - INFUSION SITE REACTION [None]
  - INJECTION SITE VESICLES [None]
